FAERS Safety Report 17053002 (Version 1)
Quarter: 2019Q4

REPORT INFORMATION
  Report Type: Spontaneous
  Country: GB (occurrence: GB)
  Receive Date: 20191120
  Receipt Date: 20191120
  Transmission Date: 20200122
  Serious: Yes (Life-Threatening, Hospitalization, Disabling)
  Sender: FDA-Public Use
  Company Number: GB-JNJFOC-20191120359

PATIENT
  Age: 88 Year
  Sex: Female

DRUGS (13)
  1. TIMOLOL. [Concomitant]
     Active Substance: TIMOLOL
  2. PARACETAMOL [Concomitant]
     Active Substance: ACETAMINOPHEN
  3. LATANOPROST. [Concomitant]
     Active Substance: LATANOPROST
  4. CITALOPRAM [Concomitant]
     Active Substance: CITALOPRAM HYDROBROMIDE
  5. BISOPROLOL [Concomitant]
     Active Substance: BISOPROLOL
  6. ZAPAIN [Concomitant]
     Active Substance: ACETAMINOPHEN\CODEINE PHOSPHATE
  7. MICONAZOLE. [Concomitant]
     Active Substance: MICONAZOLE
  8. FOSTAIR [Concomitant]
     Active Substance: BECLOMETHASONE\FORMOTEROL
     Route: 055
  9. RIVAROXABAN [Suspect]
     Active Substance: RIVAROXABAN
     Indication: ATRIAL FIBRILLATION
     Dosage: 15 MG, UNK
     Route: 048
  10. LISINOPRIL. [Concomitant]
     Active Substance: LISINOPRIL
  11. OMEPRAZOLE. [Concomitant]
     Active Substance: OMEPRAZOLE
  12. FUROSEMIDE. [Concomitant]
     Active Substance: FUROSEMIDE
  13. HYLO-FORTE [Concomitant]
     Active Substance: HYALURONATE SODIUM

REACTIONS (7)
  - Condition aggravated [Unknown]
  - Subdural haemorrhage [Unknown]
  - Subarachnoid haemorrhage [Unknown]
  - Depressed level of consciousness [Unknown]
  - Seizure [Unknown]
  - Head injury [Unknown]
  - Fall [Unknown]

NARRATIVE: CASE EVENT DATE: 20191005
